FAERS Safety Report 9682898 (Version 1)
Quarter: 2013Q4

REPORT INFORMATION
  Report Type: Spontaneous
  Country: US (occurrence: None)
  Receive Date: 20131111
  Receipt Date: 20131111
  Transmission Date: 20140711
  Serious: Yes (Other)
  Sender: FDA-Public Use
  Company Number: None

PATIENT
  Age: 78 Year
  Sex: Female

DRUGS (1)
  1. OXYTROL [Suspect]

REACTIONS (3)
  - Dizziness [None]
  - Dry mouth [None]
  - Confusional state [None]
